FAERS Safety Report 10087208 (Version 2)
Quarter: 2014Q2

REPORT INFORMATION
  Report Type: Spontaneous
  Country: CA (occurrence: CA)
  Receive Date: 20140418
  Receipt Date: 20140418
  Transmission Date: 20141212
  Serious: Yes (Other)
  Sender: FDA-Public Use
  Company Number: CA-GE HEALTHCARE MEDICAL DIAGNOSTICS-OMPQ-PR-1403S-0339

PATIENT
  Age: 41 Year
  Sex: Male

DRUGS (4)
  1. OMNIPAQUE [Suspect]
     Indication: CROHN^S DISEASE
     Route: 042
     Dates: start: 20140320, end: 20140320
  2. OMNIPAQUE [Suspect]
     Indication: ABDOMINAL PAIN
  3. OMNIPAQUE [Suspect]
     Indication: ABSCESS
  4. OMNIPAQUE [Suspect]
     Indication: DIAGNOSTIC PROCEDURE

REACTIONS (3)
  - Eye swelling [Unknown]
  - Swelling face [Unknown]
  - Urticaria [Unknown]
